FAERS Safety Report 11115973 (Version 3)
Quarter: 2015Q3

REPORT INFORMATION
  Report Type: Report from Study
  Country: US (occurrence: None)
  Receive Date: 20150513
  Receipt Date: 20150827
  Transmission Date: 20151125
  Serious: Yes (Hospitalization)
  Sender: FDA-Public Use
  Company Number: US-001916N

PATIENT
  Age: 49 Year
  Sex: Male

DRUGS (2)
  1. GATTEX [Suspect]
     Active Substance: TEDUGLUTIDE\WATER
     Indication: SHORT-BOWEL SYNDROME
     Dosage: (DF SUBCUTANEOUS)
     Route: 058
     Dates: start: 20150512
  2. SOLUTIONS FOR PARENTERAL NUTRITION [Concomitant]
     Active Substance: AMINO ACIDS\DEXTROSE\ELECTROLYTES NOS

REACTIONS (10)
  - Abdominal pain [None]
  - Stoma site pain [None]
  - Stoma site discomfort [None]
  - Incisional hernia [None]
  - Stoma site induration [None]
  - Stoma site erythema [None]
  - Headache [None]
  - Stoma complication [None]
  - Intestinal obstruction [None]
  - Drug dose omission [None]

NARRATIVE: CASE EVENT DATE: 201504
